FAERS Safety Report 8614800-5 (Version None)
Quarter: 2012Q3

REPORT INFORMATION
  Report Type: 
  Country: None (occurrence: None)
  Receive Date: 20120823
  Receipt Date: 20120814
  Transmission Date: 20120928
  Serious: Yes (Disabling)
  Sender: FDA-Public Use
  Company Number: US-MERCK-1208USA006797

PATIENT

DRUGS (4)
  1. PROCRIT [Concomitant]
     Dosage: 40000 IU, QW
     Route: 058
  2. PEG-INTRON [Suspect]
     Dosage: 120 MICROGRAM, QW
     Route: 058
     Dates: start: 20120525
  3. RIBASPHERE [Suspect]
     Dosage: 200MG IN AM 400MG PM
  4. TELAPREVIR [Concomitant]
     Dosage: 750 MG, TID
     Route: 048

REACTIONS (5)
  - ANORECTAL DISCOMFORT [None]
  - HAEMORRHOIDS [None]
  - ANAL FISTULA [None]
  - ANAEMIA [None]
  - ADVERSE EVENT [None]
